FAERS Safety Report 25889878 (Version 1)
Quarter: 2025Q4

REPORT INFORMATION
  Report Type: Other
  Country: EU (occurrence: EU)
  Receive Date: 20251007
  Receipt Date: 20251007
  Transmission Date: 20260118
  Serious: Yes (Other)
  Sender: CHANGZHOU PHARMACEUTICAL FACTORY
  Company Number: EU-Changzhou Pharmaceutical Factory-2186081

PATIENT
  Age: 50 Year
  Sex: Male

DRUGS (4)
  1. DOXYCYCLINE HYCLATE [Suspect]
     Active Substance: DOXYCYCLINE HYCLATE
     Indication: Antibiotic therapy
  2. PENICILLIN G [Suspect]
     Active Substance: PENICILLIN G
  3. METRONIDAZOLE [Suspect]
     Active Substance: METRONIDAZOLE
  4. GENTAMICIN [Suspect]
     Active Substance: GENTAMICIN

REACTIONS (1)
  - Acute generalised exanthematous pustulosis [Recovered/Resolved]
